FAERS Safety Report 24140050 (Version 1)
Quarter: 2024Q3

REPORT INFORMATION
  Report Type: Spontaneous
  Country: SE (occurrence: None)
  Receive Date: 20240726
  Receipt Date: 20240726
  Transmission Date: 20241017
  Serious: Yes (Hospitalization)
  Sender: ASTRAZENECA
  Company Number: 2024A164882

PATIENT
  Age: 81 Year
  Sex: Female

DRUGS (5)
  1. DAPAGLIFLOZIN [Suspect]
     Active Substance: DAPAGLIFLOZIN
     Indication: Ejection fraction decreased
     Route: 048
     Dates: start: 202406
  2. METOPROLOL [Concomitant]
     Active Substance: METOPROLOL
     Dosage: 1X1
  3. ATORVASTATIN [Concomitant]
     Active Substance: ATORVASTATIN
     Dosage: 1X1
  4. LOSARTAN [Concomitant]
     Active Substance: LOSARTAN
     Dosage: 1X1
  5. ELIQUIS [Concomitant]
     Active Substance: APIXABAN
     Dosage: 1X2

REACTIONS (2)
  - Infection [Recovering/Resolving]
  - Polyuria [Recovered/Resolved]

NARRATIVE: CASE EVENT DATE: 20240601
